FAERS Safety Report 14935147 (Version 1)
Quarter: 2018Q2

REPORT INFORMATION
  Report Type: Spontaneous
  Country: US (occurrence: US)
  Receive Date: 20180506
  Receipt Date: 20180506
  Transmission Date: 20180711
  Serious: Yes (Life-Threatening, Hospitalization, Other)
  Sender: FDA-Public Use
  Company Number: None

PATIENT
  Age: 57 Year
  Sex: Female
  Weight: 71.1 kg

DRUGS (1)
  1. NUBAIN [Suspect]
     Active Substance: NALBUPHINE HYDROCHLORIDE
     Indication: HEADACHE
     Dates: start: 20180502, end: 20180502

REACTIONS (9)
  - Restlessness [None]
  - Tremor [None]
  - Nausea [None]
  - Myocardial infarction [None]
  - Dyspnoea [None]
  - Electrocardiogram abnormal [None]
  - Post-traumatic stress disorder [None]
  - Chest pain [None]
  - Chest discomfort [None]

NARRATIVE: CASE EVENT DATE: 20180502
